FAERS Safety Report 4732576-9 (Version None)
Quarter: 2005Q3

REPORT INFORMATION
  Report Type: 
  Country: None (occurrence: None)
  Receive Date: 20050803
  Receipt Date: 20050707
  Transmission Date: 20060218
  Serious: Yes (Other)
  Sender: FDA-Public Use
  Company Number: FR-ABBOTT-05P-056-0305409-00

PATIENT
  Age: 39 Year
  Sex: Female

DRUGS (7)
  1. HUMIRA [Suspect]
     Indication: RHEUMATOID ARTHRITIS
     Route: 058
     Dates: start: 20050513
  2. HYDROXYCHLOROQUINE SULFATE [Concomitant]
     Indication: POLYARTHRITIS
     Route: 048
  3. LEFLUNOMIDE [Concomitant]
     Indication: POLYARTHRITIS
     Route: 048
  4. MELOXICAM [Concomitant]
     Indication: POLYARTHRITIS
     Route: 065
  5. DI-GESIC [Concomitant]
     Indication: PAIN
     Route: 065
  6. LAMALINE [Concomitant]
     Indication: PAIN
     Route: 065
  7. LANSOPRAZOLE [Concomitant]
     Indication: ABDOMINAL PAIN UPPER
     Route: 065

REACTIONS (3)
  - INJECTION SITE ERYTHEMA [None]
  - INJECTION SITE INDURATION [None]
  - INJECTION SITE PAIN [None]
